FAERS Safety Report 9397926 (Version 1)
Quarter: 2013Q3

REPORT INFORMATION
  Report Type: Spontaneous
  Country: IT (occurrence: None)
  Receive Date: 20130709
  Receipt Date: 20130709
  Transmission Date: 20140515
  Serious: Yes (Hospitalization)
  Sender: FDA-Public Use
  Company Number: GER/ITL/13/0030366

PATIENT
  Age: 66 Year
  Sex: Male

DRUGS (10)
  1. CARVEDILOL [Suspect]
     Indication: PRODUCT USED FOR UNKNOWN INDICATION
     Dosage: 1 IN 1 D
     Route: 048
     Dates: start: 20110101, end: 20130609
  2. ISOPTIN [Suspect]
     Indication: PRODUCT USED FOR UNKNOWN INDICATION
     Dosage: 1 IN 1 D
     Route: 048
     Dates: start: 20110101, end: 20130609
  3. AVODART (DUTASTERIDE) CAPSULES [Concomitant]
  4. ESAPENT (OMEGA-3 TRIGLYCERIDES) [Concomitant]
  5. IGROTON (CHLORTALIDONE) [Concomitant]
  6. ASCRIPTIN (ASCRIPTIN) [Concomitant]
  7. SIMVASTATIN (SIMVASTATIN) [Concomitant]
  8. METFORMIN HYDROCHLORIDE (METFORMIN HYDROCHLORIDE) [Concomitant]
  9. AMLODIPINE (AMLODIPINE BESILATE) [Concomitant]
  10. RAMIPRIL (RAMIPRIL) [Concomitant]

REACTIONS (3)
  - Asthenia [None]
  - Atrial fibrillation [None]
  - Drug interaction [None]
